FAERS Safety Report 9711928 (Version 2)
Quarter: 2013Q4

REPORT INFORMATION
  Report Type: Spontaneous
  Country: US (occurrence: US)
  Receive Date: 20131126
  Receipt Date: 20131126
  Transmission Date: 20140711
  Serious: Yes (Other)
  Sender: FDA-Public Use
  Company Number: US-BRISTOL-MYERS SQUIBB COMPANY-19127505

PATIENT
  Age: 72 Year
  Sex: Female
  Weight: 105.21 kg

DRUGS (2)
  1. BYDUREON [Suspect]
     Indication: TYPE 2 DIABETES MELLITUS
     Route: 058
     Dates: start: 20130502, end: 20130715
  2. LANTUS [Suspect]
     Dosage: 1DF=52 UNITS QAM?1DF=18UNITS QPM
     Route: 058

REACTIONS (1)
  - Blood glucose increased [Recovering/Resolving]
